FAERS Safety Report 15807474 (Version 1)
Quarter: 2019Q1

REPORT INFORMATION
  Report Type: Spontaneous
  Country: US (occurrence: US)
  Receive Date: 20190110
  Receipt Date: 20190110
  Transmission Date: 20190417
  Serious: Yes (Other)
  Sender: FDA-Public Use
  Company Number: US-PFIZER INC-2019006747

PATIENT
  Sex: Male

DRUGS (1)
  1. LYRICA [Suspect]
     Active Substance: PREGABALIN
     Indication: FIBROMYALGIA
     Dosage: UNK
     Dates: end: 20190101

REACTIONS (10)
  - Panic attack [Unknown]
  - Insomnia [Unknown]
  - Irritability [Unknown]
  - Withdrawal syndrome [Unknown]
  - Vomiting [Unknown]
  - Anxiety [Unknown]
  - Hypertension [Unknown]
  - Drug dependence [Unknown]
  - Hyperhidrosis [Unknown]
  - Thinking abnormal [Unknown]

NARRATIVE: CASE EVENT DATE: 201901
